FAERS Safety Report 4649131-1 (Version None)
Quarter: 2005Q2

REPORT INFORMATION
  Report Type: 
  Country: None (occurrence: None)
  Receive Date: 20050429
  Receipt Date: 20050420
  Transmission Date: 20051028
  Serious: Yes (Hospitalization)
  Sender: FDA-Public Use
  Company Number: SE-GLAXOSMITHKLINE-B0379169A

PATIENT
  Age: 48 Year
  Sex: Male

DRUGS (8)
  1. ZINACEF [Suspect]
     Dosage: 4.5G PER DAY
     Route: 042
     Dates: start: 20050114, end: 20050124
  2. TIENAM [Suspect]
     Dosage: 1.5G PER DAY
     Route: 042
     Dates: start: 20050211, end: 20050213
  3. MERREM [Suspect]
     Dosage: 1.5G PER DAY
     Route: 042
     Dates: start: 20050213, end: 20050215
  4. TAZOCIN [Suspect]
     Dosage: 12G PER DAY
     Route: 042
     Dates: start: 20050124, end: 20050210
  5. LOSEC [Concomitant]
  6. FRAGMIN [Concomitant]
  7. ALVEDON [Concomitant]
  8. TIPAROL [Concomitant]

REACTIONS (1)
  - AGRANULOCYTOSIS [None]
